FAERS Safety Report 8510322-0 (Version None)
Quarter: 2012Q3

REPORT INFORMATION
  Report Type: 
  Country: None (occurrence: None)
  Receive Date: 20120713
  Receipt Date: 20120625
  Transmission Date: 20120928
  Serious: No
  Sender: FDA-Public Use
  Company Number: US-ASTRAZENECA-2012SE43218

PATIENT
  Sex: Female

DRUGS (1)
  1. NEXIUM [Suspect]
     Route: 048

REACTIONS (10)
  - ASTHENIA [None]
  - PNEUMONIA [None]
  - GASTRIC ULCER [None]
  - ADVERSE EVENT [None]
  - NERVE COMPRESSION [None]
  - DRUG DOSE OMISSION [None]
  - GASTRIC DISORDER [None]
  - SINUSITIS [None]
  - EAR INFECTION [None]
  - ENDOMETRIOSIS [None]
